FAERS Safety Report 4986087-6 (Version None)
Quarter: 2006Q1

REPORT INFORMATION
  Report Type: 
  Country: None (occurrence: None)
  Receive Date: 20060309
  Receipt Date: 20050620
  Transmission Date: 20060701
  Serious: Yes (Other)
  Sender: FDA-Public Use
  Company Number: 375741

PATIENT
  Sex: Male
  Weight: 3.6 kg

DRUGS (1)
  1. ACCUTANE [Suspect]
     Indication: ACNE
     Dosage: 80 MG DAILY ORAL
     Route: 048
     Dates: end: 20040625

REACTIONS (2)
  - NO ADVERSE EFFECT [None]
  - NORMAL NEWBORN [None]
